FAERS Safety Report 13933115 (Version 1)
Quarter: 2017Q3

REPORT INFORMATION
  Report Type: Spontaneous
  Country: CN (occurrence: CN)
  Receive Date: 20170904
  Receipt Date: 20170904
  Transmission Date: 20171127
  Serious: Yes (Other)
  Sender: FDA-Public Use
  Company Number: CN-PFIZER INC-2017376088

PATIENT
  Age: 82 Year
  Sex: Female

DRUGS (4)
  1. OULANNING [Concomitant]
     Indication: SLEEP DISORDER
     Dosage: 10 MG, 1X/DAY
     Route: 048
     Dates: start: 20170605, end: 20170712
  2. ZOLOFT [Suspect]
     Active Substance: SERTRALINE HYDROCHLORIDE
     Indication: ANXIETY
     Dosage: 40-60MG /DAY
     Route: 048
     Dates: start: 20170626
  3. JIAPULE [Concomitant]
     Indication: SLEEP DISORDER
     Dosage: 1 MG, 1X/DAY
     Route: 048
     Dates: start: 20170605, end: 20170712
  4. ZOLOFT [Suspect]
     Active Substance: SERTRALINE HYDROCHLORIDE
     Dosage: 40 MG, 1X/DAY
     Route: 048
     Dates: start: 20170628, end: 20170712

REACTIONS (2)
  - Delirium [Recovering/Resolving]
  - Cholinergic syndrome [Unknown]

NARRATIVE: CASE EVENT DATE: 20170710
